FAERS Safety Report 7202386-1 (Version None)
Quarter: 2010Q4

REPORT INFORMATION
  Report Type: 
  Country: None (occurrence: None)
  Receive Date: 20101229
  Receipt Date: 20101220
  Transmission Date: 20110411
  Serious: Yes (Death, Other)
  Sender: FDA-Public Use
  Company Number: US-PFIZER INC-2010132641

PATIENT
  Sex: Female

DRUGS (1)
  1. CHANTIX [Suspect]
     Indication: SMOKING CESSATION THERAPY
     Dosage: 0.5MG/1MG
     Dates: start: 20070901, end: 20071101

REACTIONS (6)
  - AGITATION [None]
  - ANXIETY [None]
  - COMPLETED SUICIDE [None]
  - DEPRESSION [None]
  - INSOMNIA [None]
  - PARANOIA [None]
